FAERS Safety Report 8932853 (Version 2)
Quarter: 2012Q4

REPORT INFORMATION
  Report Type: 
  Country: UY (occurrence: UY)
  Receive Date: 20121128
  Receipt Date: 20121210
  Transmission Date: 20130627
  Serious: Yes (Hospitalization)
  Sender: FDA-Public Use
  Company Number: UY-ABBOTT-12P-168-0998492-00

PATIENT
  Sex: Female

DRUGS (1)
  1. HUMIRA [Suspect]
     Indication: RHEUMATOID ARTHRITIS
     Route: 058
     Dates: start: 20111022

REACTIONS (2)
  - Ovarian cyst [Recovered/Resolved]
  - Haemorrhagic ovarian cyst [Recovering/Resolving]
